FAERS Safety Report 21564740 (Version 1)
Quarter: 2022Q4

REPORT INFORMATION
  Report Type: Spontaneous
  Country: US (occurrence: US)
  Receive Date: 20221108
  Receipt Date: 20221108
  Transmission Date: 20230112
  Serious: No
  Sender: FDA-Public Use
  Company Number: US-drreddys-SPO/USA/22/0156535

PATIENT
  Age: 63 Year
  Sex: Male

DRUGS (2)
  1. NICOTINE [Suspect]
     Active Substance: NICOTINE
     Indication: Tobacco user
     Route: 062
  2. VITAMIN B1 [Concomitant]
     Active Substance: THIAMINE HYDROCHLORIDE
     Indication: Product used for unknown indication

REACTIONS (2)
  - Product dose omission issue [Unknown]
  - Product quality issue [Unknown]
